FAERS Safety Report 23464331 (Version 1)
Quarter: 2024Q1

REPORT INFORMATION
  Report Type: Spontaneous
  Country: MX (occurrence: MX)
  Receive Date: 20240201
  Receipt Date: 20240201
  Transmission Date: 20240410
  Serious: Yes (Disabling, Other)
  Sender: FDA-Public Use
  Company Number: MX-SA-SAC20240108000612

PATIENT

DRUGS (24)
  1. HYDROXYCHLOROQUINE SULFATE [Suspect]
     Active Substance: HYDROXYCHLOROQUINE SULFATE
     Indication: Undifferentiated connective tissue disease
     Dosage: 200 MG, QD (FILM-COATED TABLET)
     Route: 048
     Dates: start: 20230928
  2. HYDROXYCHLOROQUINE SULFATE [Suspect]
     Active Substance: HYDROXYCHLOROQUINE SULFATE
     Indication: Raynaud^s phenomenon
  3. HYDROXYCHLOROQUINE SULFATE [Suspect]
     Active Substance: HYDROXYCHLOROQUINE SULFATE
     Indication: Osteoporosis
  4. HYDROXYCHLOROQUINE SULFATE [Suspect]
     Active Substance: HYDROXYCHLOROQUINE SULFATE
     Indication: Fibromyalgia
  5. ENTEROGERMINA [BACILLUS SUBTILIS] [Concomitant]
     Dosage: UNK, QD
  6. ALVERINE CITRATE\RACEMETHIONINE [Concomitant]
     Active Substance: ALVERINE CITRATE\RACEMETHIONINE
     Dosage: UNK, QD
  7. FLUOXETINE [Concomitant]
     Active Substance: FLUOXETINE HYDROCHLORIDE
     Dosage: 20 MG, QD
  8. NULYTELY BIS [Concomitant]
     Indication: Constipation
  9. MONTMORILLONITE [Concomitant]
     Active Substance: MONTMORILLONITE
     Indication: Diarrhoea
     Dosage: 3 G, QD (TAKE 3 GRAMS EVERY 24 HRS IN CASE OF DIARRHEA)
  10. GALAVER [Concomitant]
     Dosage: UNK, BID
  11. OMEPRAZOLE [Concomitant]
     Active Substance: OMEPRAZOLE
     Dosage: UNK, QD
  12. PROLIA [Concomitant]
     Active Substance: DENOSUMAB
     Dosage: UNK, Q6M
  13. AZATHIOPRINE [Concomitant]
     Active Substance: AZATHIOPRINE
     Dosage: UNK, QD
  14. SILDENAFIL [Concomitant]
     Active Substance: SILDENAFIL
     Dosage: UNK, QD
  15. PREGABALIN [Concomitant]
     Active Substance: PREGABALIN
     Indication: Fibromyalgia
     Dosage: UNK, QD
  16. CALCIUM [Concomitant]
     Active Substance: CALCIUM
     Dosage: UNK, QD (CALCIUM 600 + D)
  17. FOLIC ACID [Concomitant]
     Active Substance: FOLIC ACID
     Dosage: UNK, QD
  18. LORATADINE [Concomitant]
     Active Substance: LORATADINE
     Dosage: UNK, QD
  19. DIOSMIN [Concomitant]
     Active Substance: DIOSMIN
     Dosage: UNK, TID
  20. HESPERIDIN [Concomitant]
     Active Substance: HESPERIDIN
     Dosage: UNK, TID
  21. PINAVERIUM BROMIDE [Concomitant]
     Active Substance: PINAVERIUM BROMIDE
     Dosage: UNK
  22. SYSTANE BALANCE [Concomitant]
     Active Substance: PROPYLENE GLYCOL
     Dosage: UNK, Q2H
  23. Fresekabi [Concomitant]
     Indication: Polyp
     Dosage: UNK, BID
     Dates: end: 20231030
  24. Fresekabi [Concomitant]
     Indication: Colitis

REACTIONS (34)
  - Intellectual disability [Not Recovered/Not Resolved]
  - Diplopia [Not Recovered/Not Resolved]
  - Condition aggravated [Not Recovered/Not Resolved]
  - Swelling [Unknown]
  - Palpitations [Unknown]
  - Gait disturbance [Recovering/Resolving]
  - Chest pain [Recovering/Resolving]
  - Pain [Recovering/Resolving]
  - Depression [Not Recovered/Not Resolved]
  - Condition aggravated [Not Recovered/Not Resolved]
  - Acne [Unknown]
  - Gastrointestinal disorder [Not Recovered/Not Resolved]
  - Poor dental condition [Not Recovered/Not Resolved]
  - Hypoaesthesia [Not Recovered/Not Resolved]
  - Balance disorder [Not Recovered/Not Resolved]
  - Amnesia [Not Recovered/Not Resolved]
  - Confusional state [Not Recovered/Not Resolved]
  - Paraesthesia [Not Recovered/Not Resolved]
  - Muscular weakness [Not Recovered/Not Resolved]
  - Antisocial behaviour [Not Recovered/Not Resolved]
  - Inflammation [Not Recovered/Not Resolved]
  - Feeling of despair [Not Recovered/Not Resolved]
  - Fall [Not Recovered/Not Resolved]
  - Constipation [Not Recovered/Not Resolved]
  - Dry eye [Not Recovered/Not Resolved]
  - Sleep disorder [Not Recovered/Not Resolved]
  - Tremor [Not Recovered/Not Resolved]
  - Dyskinesia [Not Recovered/Not Resolved]
  - Vision blurred [Not Recovered/Not Resolved]
  - Dizziness [Not Recovered/Not Resolved]
  - Nervousness [Not Recovered/Not Resolved]
  - Headache [Not Recovered/Not Resolved]
  - Alopecia [Unknown]
  - Product use in unapproved indication [Unknown]

NARRATIVE: CASE EVENT DATE: 20230101
